FAERS Safety Report 16797020 (Version 2)
Quarter: 2019Q3

REPORT INFORMATION
  Report Type: Report from Study
  Country: None (occurrence: CA)
  Receive Date: 20190911
  Receipt Date: 20190917
  Transmission Date: 20191005
  Serious: Yes (Hospitalization)
  Sender: FDA-Public Use
  Company Number: CA-ABBVIE-19K-028-2920635-00

PATIENT
  Sex: Male
  Weight: 72.64 kg

DRUGS (1)
  1. DUODOPA [Suspect]
     Active Substance: CARBIDOPA\LEVODOPA
     Indication: PARKINSON^S DISEASE
     Dosage: DUODOPA-LEVODOPA: 20MG/ML, CARBIDOPA MONOHYDRATE: 5MG/ML
     Route: 050
     Dates: start: 20180903

REACTIONS (2)
  - Abdominal pain [Unknown]
  - Neoplasm malignant [Unknown]
